FAERS Safety Report 24592613 (Version 1)
Quarter: 2024Q4

REPORT INFORMATION
  Report Type: Spontaneous
  Country: TW (occurrence: TW)
  Receive Date: 20241108
  Receipt Date: 20241108
  Transmission Date: 20250114
  Serious: Yes (Hospitalization, Other)
  Sender: Steriscience PTE
  Company Number: TW-STERISCIENCE B.V.-2024-ST-001830

PATIENT
  Age: 83 Year
  Sex: Male

DRUGS (3)
  1. VANCOMYCIN [Suspect]
     Active Substance: VANCOMYCIN
     Indication: Mastoiditis
     Dosage: UNK
     Route: 065
  2. CEFEPIME [Suspect]
     Active Substance: CEFEPIME HYDROCHLORIDE
     Indication: Mastoiditis
     Dosage: UNK
     Route: 065
  3. MANNITOL [Concomitant]
     Active Substance: MANNITOL
     Indication: Brain oedema
     Dosage: UNK
     Route: 065

REACTIONS (6)
  - Hypothermia [Unknown]
  - Renal impairment [Unknown]
  - Coagulopathy [Unknown]
  - Shock [Unknown]
  - Drug ineffective [Unknown]
  - Condition aggravated [Unknown]
